FAERS Safety Report 4528673-3 (Version None)
Quarter: 2004Q4

REPORT INFORMATION
  Report Type: 
  Country: None (occurrence: None)
  Receive Date: 20041216
  Receipt Date: 20041209
  Transmission Date: 20050328
  Serious: Yes (Life-Threatening, Hospitalization)
  Sender: FDA-Public Use
  Company Number: US-MERCK-0412USA01210

PATIENT
  Age: 31 Year
  Sex: Female

DRUGS (5)
  1. VIOXX [Suspect]
     Indication: BACK DISORDER
     Route: 048
  2. TIZANIDINE HYDROCHLORIDE [Concomitant]
     Route: 065
  3. TRAMADOL HYDROCHLORIDE [Concomitant]
     Route: 065
  4. CELEBREX [Concomitant]
     Route: 065
  5. ULTRACET [Concomitant]
     Route: 065

REACTIONS (3)
  - HEADACHE [None]
  - PARAESTHESIA [None]
  - PARAESTHESIA ORAL [None]
